FAERS Safety Report 7700793-1 (Version None)
Quarter: 2011Q3

REPORT INFORMATION
  Report Type: 
  Country: None (occurrence: None)
  Receive Date: 20110822
  Receipt Date: 20110810
  Transmission Date: 20111222
  Serious: Yes (Hospitalization)
  Sender: FDA-Public Use
  Company Number: AT-ROCHE-796196

PATIENT
  Sex: Female
  Weight: 58 kg

DRUGS (2)
  1. PEGINTERFERON ALFA-2A [Suspect]
     Dosage: LAST DOSE PRIOR TO SAE : 01 SEP 2010
     Route: 058
     Dates: start: 20100317
  2. RIBAVIRIN [Suspect]
     Dosage: LAST DOSE PRIOR TO SAE : 01 SEP 2010
     Route: 048
     Dates: start: 20100317

REACTIONS (1)
  - CATARACT [None]
